FAERS Safety Report 8357216-1 (Version None)
Quarter: 2012Q2

REPORT INFORMATION
  Report Type: 
  Country: None (occurrence: None)
  Receive Date: 20120514
  Receipt Date: 20120501
  Transmission Date: 20120825
  Serious: Yes (Hospitalization)
  Sender: FDA-Public Use
  Company Number: GB-ELI_LILLY_AND_COMPANY-GB201201005543

PATIENT
  Sex: Male

DRUGS (3)
  1. PROZAC [Suspect]
     Indication: DEPRESSION
     Dosage: 20 MG, QD
     Route: 048
     Dates: start: 20111003
  2. PROZAC [Suspect]
     Dosage: 40 MG, QD
     Route: 048
  3. ZOPICLONE [Concomitant]
     Dosage: 7.5 MG, QD
     Route: 065

REACTIONS (4)
  - NEUROLOGICAL SYMPTOM [None]
  - VISION BLURRED [None]
  - BLINDNESS UNILATERAL [None]
  - VISUAL FIELD DEFECT [None]
